FAERS Safety Report 12084447 (Version 1)
Quarter: 2016Q1

REPORT INFORMATION
  Report Type: Spontaneous
  Country: FR (occurrence: FR)
  Receive Date: 20160217
  Receipt Date: 20160217
  Transmission Date: 20160526
  Serious: Yes (Life-Threatening, Other)
  Sender: FDA-Public Use
  Company Number: FR-FRESENIUS KABI-FK201600784

PATIENT
  Age: 92 Year
  Sex: Female

DRUGS (1)
  1. ACYCLOVIR SODIUM (MANUFACTURER UNKNOWN) (ACYCLOVIR SODIUM) (ACYCLOVIR SODIUM) [Suspect]
     Active Substance: ACYCLOVIR SODIUM
     Indication: VARICELLA ZOSTER VIRUS INFECTION
     Route: 042

REACTIONS (1)
  - Acute kidney injury [Recovered/Resolved]
